FAERS Safety Report 4445093-0 (Version None)
Quarter: 2004Q3

REPORT INFORMATION
  Report Type: 
  Country: None (occurrence: None)
  Receive Date: 20040907
  Receipt Date: 20040820
  Transmission Date: 20050211
  Serious: Yes (Death)
  Sender: FDA-Public Use
  Company Number: L04-ESP-03962-18

PATIENT
  Age: 38 Year
  Sex: Male

DRUGS (5)
  1. CITALOPRAM [Suspect]
  2. BUFLOMEDIL [Suspect]
  3. CODEINE [Suspect]
  4. MORPHINE [Suspect]
  5. THIORIDAZINE HCL [Suspect]

REACTIONS (1)
  - ACCIDENTAL OVERDOSE [None]
